FAERS Safety Report 9133616 (Version 1)
Quarter: 2013Q1

REPORT INFORMATION
  Report Type: Spontaneous
  Country: CH (occurrence: CH)
  Receive Date: 20130125
  Receipt Date: 20130125
  Transmission Date: 20140127
  Serious: Yes (Other)
  Sender: FDA-Public Use
  Company Number: CH-B.I. PHARMACEUTICALS,INC./RIDGEFIELD-2013-BI-01257GD

PATIENT
  Age: 57 Year
  Sex: Male

DRUGS (5)
  1. PRAMIPEXOLE [Suspect]
     Indication: RESTLESS LEGS SYNDROME
     Dosage: 1.125 MG
  2. CLONAZEPAM [Suspect]
     Indication: RESTLESS LEGS SYNDROME
     Dosage: 0.5 MG
  3. HALOPERIDOL [Suspect]
     Indication: AKATHISIA
     Dosage: 10 MG
     Route: 030
  4. HALOPERIDOL [Suspect]
     Indication: CONFUSIONAL STATE
  5. ANESTHETICS [Suspect]
     Indication: ANAESTHESIA PROCEDURE

REACTIONS (4)
  - Restless legs syndrome [Recovered/Resolved]
  - Akathisia [Recovered/Resolved]
  - Confusional state [Unknown]
  - Aggression [Unknown]
